FAERS Safety Report 18655137 (Version 1)
Quarter: 2020Q4

REPORT INFORMATION
  Report Type: Spontaneous
  Country: FR (occurrence: FR)
  Receive Date: 20201223
  Receipt Date: 20201223
  Transmission Date: 20210114
  Serious: Yes (Hospitalization)
  Sender: FDA-Public Use
  Company Number: NVSC2020FR335110

PATIENT
  Age: 14 Year
  Sex: Female
  Weight: 35 kg

DRUGS (8)
  1. KETAMINE [Concomitant]
     Active Substance: KETAMINE
     Indication: ANAESTHESIA
     Dosage: 60 MG,QD
     Route: 042
     Dates: start: 20200923, end: 20200923
  2. VANCOMYCINE SANDOZ 500 MG, POUDRE POUR SOLUTION POUR PERFUSION [Suspect]
     Active Substance: VANCOMYCIN HYDROCHLORIDE
     Indication: ANTIBIOTIC PROPHYLAXIS
     Dosage: 500 MG, ONCE/SINGLE (TOTAL)
     Route: 042
     Dates: start: 20200923, end: 20200923
  3. ATRACURIUM [Concomitant]
     Active Substance: ATRACURIUM
     Indication: ANAESTHESIA
     Dosage: 70.5 MG, QD
     Route: 042
     Dates: start: 20200923, end: 20200923
  4. REMIFENTANIL HYDROCHLORIDE. [Concomitant]
     Active Substance: REMIFENTANIL HYDROCHLORIDE
     Indication: ANAESTHESIA
     Dosage: 2050 UG,QD
     Route: 042
     Dates: start: 20200923, end: 20200923
  5. DEXAMETHASONE. [Concomitant]
     Active Substance: DEXAMETHASONE
     Indication: INFLAMMATION
     Dosage: 6 MG, ONCE/SINGLE (TOTAL)
     Route: 042
     Dates: start: 20200923, end: 20200923
  6. EXACYL [Concomitant]
     Active Substance: TRANEXAMIC ACID
     Indication: HAEMORRHAGE
     Dosage: 1830 MG,QD
     Route: 042
     Dates: start: 20200923, end: 20200923
  7. PROPOFOL. [Concomitant]
     Active Substance: PROPOFOL
     Indication: ANAESTHESIA
     Dosage: 1878 MG,QD
     Route: 042
     Dates: start: 20200923, end: 20200923
  8. LIDOCAINE. [Concomitant]
     Active Substance: LIDOCAINE
     Indication: ANAESTHESIA
     Dosage: 344 MG, QD
     Route: 042
     Dates: start: 20200923, end: 20200923

REACTIONS (2)
  - Erythema [Recovered/Resolved]
  - Tachycardia [Recovered/Resolved]

NARRATIVE: CASE EVENT DATE: 20200923
